FAERS Safety Report 24986422 (Version 1)
Quarter: 2025Q1

REPORT INFORMATION
  Report Type: Spontaneous
  Country: US (occurrence: None)
  Receive Date: 20250218
  Receipt Date: 20250218
  Transmission Date: 20250409
  Serious: No
  Sender: FDA-CTU
  Company Number: None

PATIENT
  Sex: Female

DRUGS (7)
  1. VIGABATRIN [Suspect]
     Active Substance: VIGABATRIN
     Indication: Epilepsy
     Dosage: FREQUENCY : TWICE A DAY;?
     Route: 048
  2. VITAMINS [Concomitant]
     Active Substance: VITAMINS
  3. XCOPRI [Concomitant]
     Active Substance: CENOBAMATE
  4. CULTURELLE IMMUNITY SUPPO [Concomitant]
  5. CALCIUM CARBONATE [Concomitant]
     Active Substance: CALCIUM CARBONATE
  6. LEVETIRACETAM [Concomitant]
     Active Substance: LEVETIRACETAM
  7. VITAMIN D3 [Concomitant]
     Active Substance: CHOLECALCIFEROL

REACTIONS (1)
  - Therapy interrupted [None]
